FAERS Safety Report 8439370-6 (Version None)
Quarter: 2012Q2

REPORT INFORMATION
  Report Type: 
  Country: None (occurrence: None)
  Receive Date: 20120615
  Receipt Date: 20120613
  Transmission Date: 20120825
  Serious: Yes (Death, Hospitalization, Other)
  Sender: FDA-Public Use
  Company Number: PHHY2009CA54120

PATIENT
  Sex: Male
  Weight: 40 kg

DRUGS (5)
  1. BROMAZEPAM [Concomitant]
     Dosage: 3 MG, QHS
  2. CLOZARIL [Suspect]
     Indication: SCHIZOPHRENIA
     Dosage: 350 MG, UNK
     Route: 048
     Dates: start: 20110311, end: 20120515
  3. YOHIMBINE [Concomitant]
     Dosage: 4 MG, PRN
  4. INDOMETHACIN [Concomitant]
     Dosage: 50 MG, TID
  5. VALPROATE SODIUM [Concomitant]
     Dosage: UNK UKN, UNK

REACTIONS (3)
  - WEIGHT INCREASED [None]
  - METABOLIC SYNDROME [None]
  - DEATH [None]
